FAERS Safety Report 12466018 (Version 4)
Quarter: 2016Q3

REPORT INFORMATION
  Report Type: Spontaneous
  Country: FR (occurrence: FR)
  Receive Date: 20160614
  Receipt Date: 20160708
  Transmission Date: 20161109
  Serious: Yes (Death, Hospitalization)
  Sender: FDA-Public Use
  Company Number: FR-TEVA-667428ISR

PATIENT
  Age: 68 Year
  Sex: Female

DRUGS (1)
  1. AMLODIPINE [Suspect]
     Active Substance: AMLODIPINE BESYLATE
     Dosage: MASSIVE INGESTION
     Route: 048

REACTIONS (5)
  - Hypotension [Fatal]
  - Overdose [Fatal]
  - Toxicity to various agents [Fatal]
  - Organ failure [Fatal]
  - Shock [Fatal]
